FAERS Safety Report 17040481 (Version 1)
Quarter: 2019Q4

REPORT INFORMATION
  Report Type: Spontaneous
  Country: TN (occurrence: TN)
  Receive Date: 20191117
  Receipt Date: 20191117
  Transmission Date: 20200122
  Serious: Yes (Other)
  Sender: FDA-Public Use
  Company Number: TN-UCBSA-2019047642

PATIENT
  Age: 59 Year
  Sex: Female

DRUGS (3)
  1. BI PRETERAX [INDAPAMIDE;PERINDOPRIL ARGININE] [Concomitant]
     Indication: HYPERTENSION
     Dosage: UNK
  2. NEBILET [Concomitant]
     Active Substance: NEBIVOLOL
     Indication: HYPERTENSION
     Dosage: UNK
  3. CIMZIA [Suspect]
     Active Substance: CERTOLIZUMAB PEGOL
     Indication: RHEUMATOID ARTHRITIS
     Dosage: UNK
     Dates: start: 201606

REACTIONS (1)
  - Scleritis [Unknown]
